FAERS Safety Report 9511131 (Version 73)
Quarter: 2021Q3

REPORT INFORMATION
  Report Type: Other
  Country: CA (occurrence: CA)
  Receive Date: 20130910
  Receipt Date: 20210825
  Transmission Date: 20211014
  Serious: Yes (Hospitalization, Other)
  Sender: FDA-Public Use
  Company Number: CA-ROCHE-1125463

PATIENT
  Age: 50 Year
  Sex: Male
  Weight: 123 kg

DRUGS (43)
  1. TAMSULIN [Concomitant]
  2. CODEINE [Concomitant]
     Active Substance: CODEINE
     Dosage: 1?4 TABLETS
  3. SYMBICORT [Concomitant]
     Active Substance: BUDESONIDE\FORMOTEROL FUMARATE DIHYDRATE
     Route: 065
  4. SULFAMETHOXAZOLE/TRIMETHOPRIM [Concomitant]
     Active Substance: SULFAMETHOXAZOLE\TRIMETHOPRIM
     Dosage: 80MG/160MG MON?WED?FRI
  5. SPIRONOLACTONE. [Concomitant]
     Active Substance: SPIRONOLACTONE
  6. TIZANIDINE. [Concomitant]
     Active Substance: TIZANIDINE
     Indication: BACK PAIN
  7. ACTEMRA [Suspect]
     Active Substance: TOCILIZUMAB
     Indication: RHEUMATOID ARTHRITIS
     Route: 042
     Dates: start: 20140502, end: 20210709
  8. SULFATRIM [Suspect]
     Active Substance: SULFAMETHOXAZOLE\TRIMETHOPRIM
     Indication: PRODUCT USED FOR UNKNOWN INDICATION
     Dosage: 80MG/160MG MON?WED?FRI
     Route: 065
  9. PREDNISONE. [Concomitant]
     Active Substance: PREDNISONE
  10. MORPHINE [Suspect]
     Active Substance: MORPHINE
     Indication: PRODUCT USED FOR UNKNOWN INDICATION
     Route: 065
  11. PANTOLOC [Concomitant]
     Active Substance: PANTOPRAZOLE SODIUM
     Dosage: 8?9 MONTHS AGO
  12. RAMIPRIL. [Concomitant]
     Active Substance: RAMIPRIL
  13. ZOPICLONE [Concomitant]
     Active Substance: ZOPICLONE
  14. ACETAMINOPHEN. [Concomitant]
     Active Substance: ACETAMINOPHEN
     Indication: PREMEDICATION
     Route: 048
     Dates: start: 20120110, end: 20130918
  15. CLONAZEPAM. [Concomitant]
     Active Substance: CLONAZEPAM
     Dosage: ONGOING
  16. DIMENHYDRINATE. [Concomitant]
     Active Substance: DIMENHYDRINATE
     Indication: PREMEDICATION
     Route: 048
     Dates: start: 20160303, end: 20160401
  17. TIZANIDINE. [Concomitant]
     Active Substance: TIZANIDINE
     Indication: NEUROPATHY PERIPHERAL
  18. RITUXAN [Suspect]
     Active Substance: RITUXIMAB
     Indication: RHEUMATOID ARTHRITIS
     Dosage: FREQUENCY: DAY 1 + 15
     Route: 042
     Dates: start: 20120110, end: 20130918
  19. MORPHINE [Suspect]
     Active Substance: MORPHINE
     Route: 065
  20. PREDNISONE. [Concomitant]
     Active Substance: PREDNISONE
  21. LIPITOR [Concomitant]
     Active Substance: ATORVASTATIN CALCIUM
  22. ATORVASTATIN [Concomitant]
     Active Substance: ATORVASTATIN
  23. BENADRYL [Concomitant]
     Active Substance: DIPHENHYDRAMINE HYDROCHLORIDE
     Route: 048
     Dates: start: 20151217, end: 20151217
  24. CLINDAMYCIN. [Concomitant]
     Active Substance: CLINDAMYCIN
  25. METHOTREXATE. [Concomitant]
     Active Substance: METHOTREXATE
     Route: 058
  26. FLOMAX [Concomitant]
     Active Substance: TAMSULOSIN HYDROCHLORIDE
  27. METHYLPREDNISOLONE. [Concomitant]
     Active Substance: METHYLPREDNISOLONE
     Indication: PREMEDICATION
     Route: 042
     Dates: start: 20120110, end: 20130918
  28. HYDROXYCHLOROQUINE [Concomitant]
     Active Substance: HYDROXYCHLOROQUINE
  29. LIPITOR [Concomitant]
     Active Substance: ATORVASTATIN CALCIUM
  30. DIMENHYDRINATE. [Concomitant]
     Active Substance: DIMENHYDRINATE
     Route: 042
     Dates: start: 20191217
  31. RITUXAN [Suspect]
     Active Substance: RITUXIMAB
     Route: 042
     Dates: start: 20120925, end: 20130918
  32. ACTEMRA [Suspect]
     Active Substance: TOCILIZUMAB
     Dosage: LAST INFUSION RECEIVED ON FEB/2015
     Route: 042
     Dates: start: 20150112, end: 201502
  33. FOLIC ACID. [Concomitant]
     Active Substance: FOLIC ACID
  34. PLAQUENIL [Concomitant]
     Active Substance: HYDROXYCHLOROQUINE SULFATE
  35. TAMSULOSIN [Concomitant]
     Active Substance: TAMSULOSIN
     Route: 065
  36. BENADRYL [Concomitant]
     Active Substance: DIPHENHYDRAMINE HYDROCHLORIDE
     Indication: PREMEDICATION
     Route: 048
     Dates: start: 20150217, end: 20150217
  37. TYLENOL [Concomitant]
     Active Substance: ACETAMINOPHEN
     Indication: PREMEDICATION
     Route: 048
     Dates: start: 20150811, end: 20201005
  38. RITUXAN [Suspect]
     Active Substance: RITUXIMAB
     Route: 042
     Dates: start: 20140502
  39. TRAMADOL. [Suspect]
     Active Substance: TRAMADOL
     Indication: PAIN
     Route: 065
  40. DILTIAZEM. [Suspect]
     Active Substance: DILTIAZEM
     Indication: PRODUCT USED FOR UNKNOWN INDICATION
     Route: 065
  41. HYDROCORTISONE. [Suspect]
     Active Substance: HYDROCORTISONE
     Indication: PREMEDICATION
     Route: 042
     Dates: start: 20150811
  42. PREDNISONE. [Concomitant]
     Active Substance: PREDNISONE
     Route: 065
  43. DIPHENHYDRAMINE HCL [Concomitant]
     Active Substance: DIPHENHYDRAMINE HYDROCHLORIDE
     Indication: PREMEDICATION
     Route: 048
     Dates: start: 20120110, end: 20130918

REACTIONS (52)
  - Infection [Recovered/Resolved]
  - Umbilical hernia [Recovering/Resolving]
  - Oxygen saturation decreased [Unknown]
  - Contusion [Unknown]
  - Infected dermal cyst [Unknown]
  - Blood pressure fluctuation [Unknown]
  - Neuropathy peripheral [Unknown]
  - Anal fistula [Recovered/Resolved]
  - Chest discomfort [Unknown]
  - Weight decreased [Recovered/Resolved]
  - Road traffic accident [Unknown]
  - Anxiety [Recovered/Resolved]
  - Dizziness [Recovered/Resolved]
  - Neuralgia [Unknown]
  - Oedema peripheral [Not Recovered/Not Resolved]
  - Nausea [Recovering/Resolving]
  - Hypotension [Unknown]
  - Perineal infection [Unknown]
  - Arteriovenous fistula [Not Recovered/Not Resolved]
  - Infusion related reaction [Recovered/Resolved]
  - Neoplasm malignant [Unknown]
  - Benign prostatic hyperplasia [Not Recovered/Not Resolved]
  - Tooth injury [Unknown]
  - Muscular weakness [Unknown]
  - Pallor [Unknown]
  - Scrotal infection [Unknown]
  - Influenza [Unknown]
  - Chronic obstructive pulmonary disease [Recovering/Resolving]
  - Back pain [Not Recovered/Not Resolved]
  - Rash [Not Recovered/Not Resolved]
  - Rheumatoid arthritis [Unknown]
  - Oxygen saturation decreased [Unknown]
  - Palpitations [Recovered/Resolved]
  - Tendon pain [Unknown]
  - Intracranial aneurysm [Not Recovered/Not Resolved]
  - Blood pressure diastolic abnormal [Unknown]
  - Weight increased [Unknown]
  - Anal haemorrhage [Unknown]
  - Arthralgia [Not Recovered/Not Resolved]
  - Dizziness [Recovering/Resolving]
  - Blood pressure diastolic decreased [Unknown]
  - Sleep apnoea syndrome [Unknown]
  - Blood pressure systolic abnormal [Unknown]
  - Heart rate irregular [Unknown]
  - Drug ineffective [Unknown]
  - Dermal cyst [Unknown]
  - Dyspnoea [Recovered/Resolved]
  - Fall [Unknown]
  - Nasopharyngitis [Recovered/Resolved]
  - Hypoglycaemia [Recovered/Resolved]
  - Optic nerve operation [Unknown]
  - Heart rate decreased [Unknown]

NARRATIVE: CASE EVENT DATE: 20120910
